FAERS Safety Report 7817679 (Version 3)
Quarter: 2014Q1

REPORT INFORMATION
  Report Type: Spontaneous
  Country: US (occurrence: US)
  Receive Date: 20110217
  Receipt Date: 20140115
  Transmission Date: 20141002
  Serious: Yes (Hospitalization, Other)
  Sender: FDA-Public Use
  Company Number: US-BAYER-2011-013980

PATIENT
  Age: 27 Year
  Sex: Female

DRUGS (5)
  1. YAZ [Suspect]
     Dosage: UNK
     Route: 048
     Dates: start: 2008, end: 2009
  2. CIPRO [Concomitant]
     Dosage: 500 MG, BID
     Route: 048
  3. DICYCLOMINE [Concomitant]
     Dosage: 10 MG, TID
     Route: 048
  4. METRONIDAZOLE [Concomitant]
     Dosage: 500 MG, BID
  5. AMOXICILLIN [Concomitant]
     Dosage: 500 MG, UNK

REACTIONS (3)
  - Cholecystitis chronic [None]
  - Gallbladder non-functioning [None]
  - Pain [None]
